FAERS Safety Report 18215904 (Version 1)
Quarter: 2020Q3

REPORT INFORMATION
  Report Type: Spontaneous
  Country: ES (occurrence: ES)
  Receive Date: 20200901
  Receipt Date: 20200901
  Transmission Date: 20201103
  Serious: Yes (Other)
  Sender: FDA-Public Use
  Company Number: ES-ROCHE-2668484

PATIENT
  Age: 73 Year
  Sex: Female

DRUGS (3)
  1. ZAMENE [Concomitant]
     Active Substance: DEFLAZACORT
     Indication: CHRONIC SINUSITIS
     Route: 048
     Dates: start: 20200715, end: 20200805
  2. OMALIZUMAB. [Suspect]
     Active Substance: OMALIZUMAB
     Indication: PRODUCT USED FOR UNKNOWN INDICATION
     Route: 058
     Dates: start: 20200713
  3. FASENRA [Concomitant]
     Active Substance: BENRALIZUMAB

REACTIONS (7)
  - Hallucination, visual [Unknown]
  - Weight decreased [Unknown]
  - Arthralgia [Unknown]
  - Pyrexia [Unknown]
  - Malaise [Unknown]
  - Decreased appetite [Unknown]
  - Product administration error [Unknown]

NARRATIVE: CASE EVENT DATE: 20200715
